FAERS Safety Report 15837054 (Version 1)
Quarter: 2019Q1

REPORT INFORMATION
  Report Type: Spontaneous
  Country: RO (occurrence: RO)
  Receive Date: 20190117
  Receipt Date: 20190117
  Transmission Date: 20190417
  Serious: Yes (Life-Threatening, Hospitalization, Other)
  Sender: FDA-Public Use
  Company Number: RO-STRIDES ARCOLAB LIMITED-2019SP000449

PATIENT
  Age: 6 Year
  Sex: Male
  Weight: 23 kg

DRUGS (2)
  1. IBUPROFEN. [Suspect]
     Active Substance: IBUPROFEN
     Dosage: 190 MG, TOTAL (SUSPENSION)
     Route: 048
  2. IBUPROFEN. [Suspect]
     Active Substance: IBUPROFEN
     Indication: PYREXIA
     Dosage: 100 MG, EVERY 2 HRS
     Route: 048

REACTIONS (19)
  - General physical condition abnormal [Recovered/Resolved]
  - Tonsillar hypertrophy [Recovered/Resolved]
  - Gastritis haemorrhagic [Recovered/Resolved]
  - Abdominal pain [Recovered/Resolved]
  - Pallor [Recovered/Resolved]
  - Lymphopenia [Recovered/Resolved]
  - Incorrect product administration duration [Recovered/Resolved]
  - Nasal obstruction [Recovered/Resolved]
  - Haematemesis [Recovered/Resolved]
  - Incorrect dose administered [Recovered/Resolved]
  - Productive cough [Recovered/Resolved]
  - Haemoglobin decreased [Recovered/Resolved]
  - Vomiting [Recovered/Resolved]
  - Decreased appetite [Recovered/Resolved]
  - Abdominal tenderness [Recovered/Resolved]
  - Dehydration [Recovered/Resolved]
  - Neutrophilia [Recovered/Resolved]
  - Nausea [Recovered/Resolved]
  - Rhinorrhoea [Recovered/Resolved]
